FAERS Safety Report 19276056 (Version 2)
Quarter: 2021Q3

REPORT INFORMATION
  Report Type: Spontaneous
  Country: JP (occurrence: JP)
  Receive Date: 20210519
  Receipt Date: 20210804
  Transmission Date: 20211014
  Serious: Yes (Hospitalization)
  Sender: FDA-Public Use
  Company Number: JP-EISAI MEDICAL RESEARCH-EC-2020-070692

PATIENT
  Age: 64 Year
  Sex: Male
  Weight: 96.2 kg

DRUGS (8)
  1. LENVATINIB [Suspect]
     Active Substance: LENVATINIB
     Indication: HEPATOCELLULAR CARCINOMA
     Route: 048
  2. LENVATINIB [Suspect]
     Active Substance: LENVATINIB
     Route: 048
  3. LACTULOSE. [Concomitant]
     Active Substance: LACTULOSE
     Indication: AMMONIA INCREASED
     Dosage: DOSE AND FREQUENCY UNKNOWN
     Route: 048
  4. RIFAXIMIN. [Concomitant]
     Active Substance: RIFAXIMIN
     Indication: AMMONIA INCREASED
     Dosage: DOSE AND FREQUENCY UNKNOWN
     Route: 065
  5. AMINOLEBAN [Concomitant]
     Active Substance: AMINO ACIDS, SOURCE UNSPECIFIED
     Indication: AMMONIA INCREASED
     Dosage: DOSE AND FREQUENCY UNKNOWN
     Route: 065
  6. LEVOCARNITINE. [Concomitant]
     Active Substance: LEVOCARNITINE
     Indication: AMMONIA INCREASED
     Dosage: DOSE AND FREQUENCY UNKNOWN
     Route: 065
  7. ZINC ACETATE HYDRATE [Concomitant]
     Indication: AMMONIA INCREASED
     Dosage: DOSE AND FREQUENCY UNKNOWN
     Route: 065
  8. LENVATINIB [Suspect]
     Active Substance: LENVATINIB
     Route: 048

REACTIONS (3)
  - Platelet count decreased [Unknown]
  - Ammonia increased [Recovering/Resolving]
  - Hepatic encephalopathy [Recovering/Resolving]
